FAERS Safety Report 11424679 (Version 1)
Quarter: 2015Q3

REPORT INFORMATION
  Report Type: Spontaneous
  Country: US (occurrence: US)
  Receive Date: 20150821
  Receipt Date: 20150821
  Transmission Date: 20151125
  Serious: No
  Sender: FDA-Public Use
  Company Number: US-ELI_LILLY_AND_COMPANY-US201211003284

PATIENT
  Age: 63 Year
  Sex: Female

DRUGS (4)
  1. HUMULIN R [Suspect]
     Active Substance: INSULIN HUMAN
     Indication: DIABETES MELLITUS
     Dosage: 34 U, EACH MORNING
  2. HUMULIN R [Suspect]
     Active Substance: INSULIN HUMAN
     Indication: DIABETES MELLITUS
     Dosage: 34 U, EACH MORNING
  3. HUMULIN R [Suspect]
     Active Substance: INSULIN HUMAN
     Dosage: 27 U, EACH EVENING
  4. HUMULIN R [Suspect]
     Active Substance: INSULIN HUMAN
     Dosage: 27 U, EACH EVENING

REACTIONS (3)
  - Dysphonia [Unknown]
  - Bronchitis [Unknown]
  - Sinusitis [Unknown]

NARRATIVE: CASE EVENT DATE: 20121004
